FAERS Safety Report 4296919-5 (Version None)
Quarter: 2004Q1

REPORT INFORMATION
  Report Type: 
  Country: None (occurrence: None)
  Receive Date: 20040213
  Receipt Date: 20040204
  Transmission Date: 20041129
  Serious: Yes (Hospitalization)
  Sender: FDA-Public Use
  Company Number: 2004007890

PATIENT
  Age: 65 Year
  Sex: Female

DRUGS (1)
  1. PHENYTOIN [Suspect]
     Indication: EPILEPSY
     Dosage: 300 MG (DAILY)

REACTIONS (7)
  - ATAXIA [None]
  - DRUG LEVEL INCREASED [None]
  - DRUG TOXICITY [None]
  - DYSARTHRIA [None]
  - NYSTAGMUS [None]
  - SOMNOLENCE [None]
  - VISION BLURRED [None]
